FAERS Safety Report 10410620 (Version 1)
Quarter: 2014Q3

REPORT INFORMATION
  Report Type: Report from Study
  Country: DE (occurrence: DE)
  Receive Date: 20140826
  Receipt Date: 20140826
  Transmission Date: 20150326
  Serious: Yes (Hospitalization, Other)
  Sender: FDA-Public Use
  Company Number: DE-PFIZER INC-2014233070

PATIENT
  Age: 66 Year
  Sex: Female

DRUGS (25)
  1. ADRIAMYCIN [Suspect]
     Active Substance: DOXORUBICIN HYDROCHLORIDE
     Indication: DIFFUSE LARGE B-CELL LYMPHOMA
     Dosage: 94 MG, CYCLIC
     Route: 042
     Dates: start: 20140409, end: 20140522
  2. ENOXAPARIN NATRIUM [Concomitant]
     Indication: DEEP VEIN THROMBOSIS
     Dosage: 6000 IU, 2X/DAY
     Route: 058
     Dates: start: 20140327
  3. RANITIDINE [Concomitant]
     Active Substance: RANITIDINE\RANITIDINE HYDROCHLORIDE
     Indication: PROPHYLAXIS
     Dosage: BEFORE ADMINISTRATION OF RITUXIMAB (50 MG)
     Route: 042
     Dates: start: 20140408, end: 20140730
  4. GRANISETRON [Concomitant]
     Active Substance: GRANISETRON
     Indication: NAUSEA
     Dosage: BEFORE ADMINISTRATION OF RITUXIMAB (3 MG)
     Route: 042
     Dates: start: 20140409
  5. CERNEVIT [Concomitant]
     Active Substance: VITAMINS
  6. PREDNISONE. [Suspect]
     Active Substance: PREDNISONE
     Indication: DIFFUSE LARGE B-CELL LYMPHOMA
     Dosage: 500 MG, CYCLIC
     Route: 048
     Dates: start: 20140409, end: 20140707
  7. PANTOPRAZOLE [Concomitant]
     Active Substance: PANTOPRAZOLE SODIUM
     Indication: GASTRIC ULCER
     Dosage: 40 MG, DAILY
     Route: 048
     Dates: start: 20140326
  8. ADDEL N [Concomitant]
     Active Substance: UNSPECIFIED INGREDIENT
  9. RITUXIMAB [Suspect]
     Active Substance: RITUXIMAB
     Dosage: 1400 MG, CYCLIC
     Route: 058
     Dates: start: 20140507
  10. RITUXIMAB [Suspect]
     Active Substance: RITUXIMAB
     Dosage: 1400 MG, CYCLIC
     Route: 058
     Dates: start: 20140521
  11. VINCRISTINE [Suspect]
     Active Substance: VINCRISTINE
     Indication: DIFFUSE LARGE B-CELL LYMPHOMA
     Dosage: 2 MG, CYCLIC
     Route: 042
     Dates: start: 20140409, end: 20140704
  12. CYCLOPHOSPHAMIDE. [Suspect]
     Active Substance: CYCLOPHOSPHAMIDE
     Dosage: 1312 MG, CYCLIC
     Route: 042
     Dates: start: 20140703, end: 20140704
  13. ADRIAMYCIN [Suspect]
     Active Substance: DOXORUBICIN HYDROCHLORIDE
     Dosage: 82 MG, CYCLIC
     Route: 042
     Dates: start: 20140703, end: 20140704
  14. ADRIAMYCIN [Suspect]
     Active Substance: DOXORUBICIN HYDROCHLORIDE
     Dosage: 87 MG, CYCLIC
     Route: 042
     Dates: start: 20140612, end: 20140613
  15. RITUXIMAB [Suspect]
     Active Substance: RITUXIMAB
     Dosage: 1400 MG, CYCLIC
     Route: 058
     Dates: start: 20140422
  16. CYCLOPHOSPHAMIDE. [Suspect]
     Active Substance: CYCLOPHOSPHAMIDE
     Dosage: 1404 MG, CYCLIC
     Route: 042
     Dates: start: 20140612, end: 20140613
  17. PREDNISOLONE ACETATE. [Concomitant]
     Active Substance: PREDNISOLONE ACETATE
     Indication: PROPHYLAXIS
     Dosage: BEFORE ADMINISTRATION OF RITUXIMAB (100 MG)
     Route: 042
     Dates: start: 20140408, end: 20140730
  18. LENOGRASTIM [Concomitant]
     Active Substance: LENOGRASTIM
     Indication: NAUSEA
     Dosage: 263 UG, DAILY
     Route: 058
     Dates: start: 20140414
  19. RITUXIMAB [Suspect]
     Active Substance: RITUXIMAB
     Indication: DIFFUSE LARGE B-CELL LYMPHOMA
     Dosage: 668 MG, EVERY 2  OR 3 WEEKS
     Route: 042
     Dates: start: 20140408
  20. RITUXIMAB [Suspect]
     Active Substance: RITUXIMAB
     Dosage: 668 MG, CYCLIC
     Route: 042
     Dates: start: 20140611
  21. RITUXIMAB [Suspect]
     Active Substance: RITUXIMAB
     Dosage: 669 MG, CYCLIC
     Route: 042
     Dates: start: 20140702
  22. RITUXIMAB [Suspect]
     Active Substance: RITUXIMAB
     Dosage: 625 MG, CYCLIC
     Route: 042
     Dates: start: 20140721
  23. CYCLOPHOSPHAMIDE. [Suspect]
     Active Substance: CYCLOPHOSPHAMIDE
     Indication: DIFFUSE LARGE B-CELL LYMPHOMA
     Dosage: 1404 MG, CYCLIC
     Route: 042
     Dates: start: 20140409, end: 20140522
  24. ALLOPURINOL. [Concomitant]
     Active Substance: ALLOPURINOL
     Indication: URATE NEPHROPATHY
     Dosage: 300 MG, DAILY
     Route: 048
     Dates: start: 20140326
  25. CLEMASTINE [Concomitant]
     Active Substance: CLEMASTINE
     Indication: PROPHYLAXIS
     Dosage: BEFORE ADMINISTRATION OF RITUXIMAB (2 MG)
     Route: 042
     Dates: start: 20140408, end: 20140730

REACTIONS (3)
  - Asthenia [Recovered/Resolved]
  - Pyrexia [Recovered/Resolved]
  - Progressive multifocal leukoencephalopathy [Not Recovered/Not Resolved]

NARRATIVE: CASE EVENT DATE: 201406
